FAERS Safety Report 10057869 (Version 1)
Quarter: 2014Q2

REPORT INFORMATION
  Report Type: Spontaneous
  Country: DE (occurrence: DE)
  Receive Date: 20140404
  Receipt Date: 20140404
  Transmission Date: 20141212
  Serious: Yes (Congenital Anomaly)
  Sender: FDA-Public Use
  Company Number: GXKR2014DE001476

PATIENT
  Sex: 0

DRUGS (6)
  1. VENLAFAXINE [Suspect]
     Indication: DEPRESSION
     Dosage: 150 [MG/D ]/ VARYING DOSAGES
     Route: 064
     Dates: start: 20120505
  2. SINGULAIR [Suspect]
     Indication: ASTHMA
     Dosage: 10 [MG/D ]
     Route: 064
     Dates: start: 20120505, end: 20130201
  3. SYMBICORT [Concomitant]
     Indication: ASTHMA
     Dosage: DOSAGE UNKNOWN
     Route: 064
     Dates: start: 20120505, end: 20130201
  4. BEROTEC [Concomitant]
     Indication: ASTHMA
     Dosage: ON DEMAND
     Route: 064
     Dates: start: 20120505, end: 20130201
  5. LEVOTHYROXIN [Concomitant]
     Indication: HYPOTHYROIDISM
     Dosage: 62.5 [?G/D ]
     Route: 064
     Dates: start: 20120505, end: 20130214
  6. FOLSAEURE [Concomitant]
     Indication: PROPHYLAXIS OF NEURAL TUBE DEFECT
     Dosage: 0.4 [MG/D ]
     Route: 064
     Dates: start: 20120505, end: 20130214

REACTIONS (1)
  - Congenital naevus [Not Recovered/Not Resolved]
